FAERS Safety Report 21454560 (Version 1)
Quarter: 2022Q4

REPORT INFORMATION
  Report Type: Report from Study
  Country: CA (occurrence: CA)
  Receive Date: 20221013
  Receipt Date: 20221013
  Transmission Date: 20230112
  Serious: Yes (Hospitalization, Other)
  Sender: FDA-Public Use
  Company Number: CA-JNJFOC-20220958553

PATIENT
  Age: 46 Year
  Sex: Male

DRUGS (3)
  1. SIMPONI [Suspect]
     Active Substance: GOLIMUMAB
     Indication: Crohn^s disease
     Route: 058
     Dates: start: 20220727
  2. SIMPONI [Suspect]
     Active Substance: GOLIMUMAB
  3. PREDNISONE [Concomitant]
     Active Substance: PREDNISONE
     Route: 042

REACTIONS (2)
  - Intestinal obstruction [Recovering/Resolving]
  - COVID-19 [Not Recovered/Not Resolved]

NARRATIVE: CASE EVENT DATE: 20220925
